FAERS Safety Report 5802950-8 (Version None)
Quarter: 2008Q3

REPORT INFORMATION
  Report Type: 
  Country: None (occurrence: None)
  Receive Date: 20080703
  Receipt Date: 20080626
  Transmission Date: 20090109
  Serious: Yes (Hospitalization, Other)
  Sender: FDA-Public Use
  Company Number: 2008SP007716

PATIENT
  Age: 57 Year
  Sex: Male

DRUGS (2)
  1. PEG-INTRON [Suspect]
     Indication: HEPATITIS C
     Dosage: SC
     Route: 058
     Dates: start: 20070912
  2. RIBAVIRIN [Suspect]
     Indication: HEPATITIS C
     Dosage: PO
     Route: 048
     Dates: start: 20070912

REACTIONS (12)
  - BACK DISORDER [None]
  - COUGH [None]
  - DRY MOUTH [None]
  - IMPAIRED HEALING [None]
  - INSOMNIA [None]
  - OPEN FRACTURE [None]
  - PYREXIA [None]
  - RENAL DISORDER [None]
  - ROAD TRAFFIC ACCIDENT [None]
  - SLEEP TALKING [None]
  - SNORING [None]
  - WEIGHT DECREASED [None]
